FAERS Safety Report 4434663-1 (Version None)
Quarter: 2004Q3

REPORT INFORMATION
  Report Type: 
  Country: None (occurrence: None)
  Receive Date: 20040827
  Receipt Date: 20040818
  Transmission Date: 20050211
  Serious: Yes (Hospitalization)
  Sender: FDA-Public Use
  Company Number: US-JNJFOC-20040806598

PATIENT
  Sex: Female
  Weight: 58.97 kg

DRUGS (6)
  1. REMICADE [Suspect]
     Indication: CROHN'S DISEASE
     Dosage: TOTAL OF 8 INFUSIONS
     Route: 042
  2. CIPRO [Concomitant]
  3. FLAGYL [Concomitant]
  4. BIRTH CONTROL [Concomitant]
  5. LIBRAX [Concomitant]
  6. LIBRAX [Concomitant]

REACTIONS (4)
  - ABDOMINAL PAIN [None]
  - HEPATIC MASS [None]
  - LYMPHADENOPATHY [None]
  - PYREXIA [None]
